FAERS Safety Report 16738025 (Version 2)
Quarter: 2019Q3

REPORT INFORMATION
  Report Type: Report from Study
  Country: US (occurrence: US)
  Receive Date: 20190824
  Receipt Date: 20190920
  Transmission Date: 20191005
  Serious: Yes (Hospitalization, Congenital Anomaly, Other)
  Sender: FDA-Public Use
  Company Number: PHEH2019US034133

PATIENT
  Weight: 2.7 kg

DRUGS (1)
  1. GILENYA [Suspect]
     Active Substance: FINGOLIMOD HYDROCHLORIDE
     Indication: FOETAL EXPOSURE DURING PREGNANCY
     Dosage: MATERNAL DOSE: NOT REPORTED
     Route: 064

REACTIONS (5)
  - Haemangioma congenital [Unknown]
  - Ventricular septal defect [Unknown]
  - Breech presentation [Unknown]
  - Premature baby [Unknown]
  - Foetal exposure during pregnancy [Unknown]
